FAERS Safety Report 24648171 (Version 1)
Quarter: 2024Q4

REPORT INFORMATION
  Report Type: Report from Study
  Country: BR (occurrence: BR)
  Receive Date: 20241121
  Receipt Date: 20241121
  Transmission Date: 20250115
  Serious: Yes (Other)
  Sender: UCB
  Company Number: BR-UCBSA-2024059975

PATIENT

DRUGS (3)
  1. CERTOLIZUMAB PEGOL [Suspect]
     Active Substance: CERTOLIZUMAB PEGOL
     Indication: Product used for unknown indication
     Dosage: UNK
  2. INFLIXIMAB [Suspect]
     Active Substance: INFLIXIMAB
     Indication: Product used for unknown indication
     Dosage: UNK
  3. ADALIMUMAB [Suspect]
     Active Substance: ADALIMUMAB
     Indication: Product used for unknown indication
     Dosage: UNK

REACTIONS (19)
  - Basal cell carcinoma [Unknown]
  - Cutaneous lupus erythematosus [Unknown]
  - Skin infection [Unknown]
  - Alopecia [Unknown]
  - Seborrhoeic dermatitis [Unknown]
  - Injection site reaction [Unknown]
  - Dermatitis psoriasiform [Unknown]
  - Dermatosis [Unknown]
  - Pruritus [Unknown]
  - Eczema [Unknown]
  - Dermatitis contact [Unknown]
  - Acne [Unknown]
  - Erythema [Unknown]
  - Rash [Unknown]
  - Actinic keratosis [Unknown]
  - Erythema nodosum [Unknown]
  - Skin papilloma [Unknown]
  - Vitiligo [Unknown]
  - Bacterial infection [Unknown]
